FAERS Safety Report 24719815 (Version 1)
Quarter: 2024Q4

REPORT INFORMATION
  Report Type: Spontaneous
  Country: US (occurrence: US)
  Receive Date: 20241211
  Receipt Date: 20241211
  Transmission Date: 20250115
  Serious: No
  Sender: Kenvue
  Company Number: US-KENVUE-20241103786

PATIENT

DRUGS (1)
  1. TYLENOL [Suspect]
     Active Substance: ACETAMINOPHEN
     Indication: Product used for unknown indication
     Dosage: 1 DOSAGE FORM, WHOLE PILL BOTTLE FROM A TYLENOL
     Route: 065

REACTIONS (3)
  - Abdominal pain [Unknown]
  - Vomiting [Unknown]
  - Incorrect dose administered [Unknown]
